FAERS Safety Report 4331962-9 (Version None)
Quarter: 2004Q2

REPORT INFORMATION
  Report Type: 
  Country: None (occurrence: None)
  Receive Date: 20040405
  Receipt Date: 20030717
  Transmission Date: 20050107
  Serious: No
  Sender: FDA-Public Use
  Company Number: US-GLAXOSMITHKLINE-A0417844A

PATIENT
  Age: 11 Year
  Sex: Male

DRUGS (5)
  1. SEREVENT [Suspect]
     Indication: ASTHMA
     Dosage: 1PUFF TWICE PER DAY
     Route: 055
     Dates: start: 20010101
  2. PULMICORT [Suspect]
     Indication: ASTHMA
  3. SINGULAIR [Concomitant]
  4. CLARINEX [Concomitant]
  5. ALBUTEROL [Concomitant]

REACTIONS (1)
  - CUSHING'S SYNDROME [None]
